FAERS Safety Report 11778983 (Version 2)
Quarter: 2015Q4

REPORT INFORMATION
  Report Type: Spontaneous
  Country: DE (occurrence: DE)
  Receive Date: 20151125
  Receipt Date: 20151216
  Transmission Date: 20160304
  Serious: Yes (Other)
  Sender: FDA-Public Use
  Company Number: DE-ELI_LILLY_AND_COMPANY-DE201511005521

PATIENT
  Age: 71 Year
  Sex: Male

DRUGS (2)
  1. METOPROLOL [Concomitant]
     Active Substance: METOPROLOL
     Dosage: UNK, UNKNOWN
     Route: 065
  2. CIALIS [Suspect]
     Active Substance: TADALAFIL
     Indication: ERECTILE DYSFUNCTION
     Dosage: 10 MG, QD
     Route: 048

REACTIONS (1)
  - Blindness transient [Recovered/Resolved]
